FAERS Safety Report 16388271 (Version 1)
Quarter: 2019Q2

REPORT INFORMATION
  Report Type: Spontaneous
  Country: US (occurrence: US)
  Receive Date: 20190531
  Receipt Date: 20190531
  Transmission Date: 20190711
  Serious: Yes (Life-Threatening)
  Sender: FDA-Public Use
  Company Number: None

PATIENT
  Age: 9 Year
  Sex: Male

DRUGS (1)
  1. HALEIGH^S HOPE [Suspect]
     Active Substance: CANNABIDIOL\HERBALS

REACTIONS (1)
  - Epilepsy [None]

NARRATIVE: CASE EVENT DATE: 20180310
